FAERS Safety Report 4290261-4 (Version None)
Quarter: 2004Q1

REPORT INFORMATION
  Report Type: 
  Country: None (occurrence: None)
  Receive Date: 20040209
  Receipt Date: 20040131
  Transmission Date: 20041129
  Serious: Yes (Other)
  Sender: FDA-Public Use
  Company Number: 2003123581

PATIENT
  Age: 50 Year
  Sex: Female

DRUGS (11)
  1. NEURONTIN [Suspect]
     Indication: NEUROPATHIC PAIN
     Dosage: 100 MG (DAILY AT BEDTIME), ORAL
     Route: 048
     Dates: start: 19981101
  2. PROPACET 100 [Concomitant]
  3. ALENDRONATE SODIUM [Concomitant]
  4. METHOCARBAMOL [Concomitant]
  5. METHYLPREDNISOLONE [Concomitant]
  6. HYDROCHLOROTHIAZIDE [Concomitant]
  7. ATENOLOL [Concomitant]
  8. ALL OTHER THERAPEUTIC PRODUCTS [Concomitant]
  9. FENTANYL [Concomitant]
  10. CLONAZEPAM [Concomitant]
  11. CELECOXIB (CELECOXIB) [Concomitant]

REACTIONS (9)
  - BREAST CANCER STAGE I [None]
  - COGNITIVE DISORDER [None]
  - DRUG DEPENDENCE [None]
  - DRUG TOLERANCE [None]
  - DYSARTHRIA [None]
  - FEELING ABNORMAL [None]
  - FOOD CRAVING [None]
  - SOMNOLENCE [None]
  - WEIGHT INCREASED [None]
